FAERS Safety Report 6278668-7 (Version None)
Quarter: 2009Q3

REPORT INFORMATION
  Report Type: 
  Country: None (occurrence: None)
  Receive Date: 20090722
  Receipt Date: 20090713
  Transmission Date: 20100115
  Serious: Yes (Other)
  Sender: FDA-Public Use
  Company Number: BR-ABBOTT-09P-020-0584936-00

PATIENT
  Sex: Female
  Weight: 81 kg

DRUGS (7)
  1. HUMIRA [Suspect]
     Indication: RHEUMATOID ARTHRITIS
     Route: 058
     Dates: start: 20080801, end: 20090101
  2. CALCIUM CITRATE W/COLECALCIFEROL [Concomitant]
     Indication: MINERAL SUPPLEMENTATION
  3. ARAVA [Concomitant]
     Indication: RHEUMATOID ARTHRITIS
     Dates: start: 20080601, end: 20090101
  4. VELAXIN [Concomitant]
     Indication: DEPRESSION
     Route: 048
  5. RIVOTRIL [Concomitant]
     Indication: DEPRESSION
     Route: 048
  6. METHOTREXATE [Concomitant]
     Indication: DRUG USE FOR UNKNOWN INDICATION
     Dosage: 5 TABLETS EVERY TUESDAY
     Dates: start: 20090201
  7. FOLIC ACID [Concomitant]
     Indication: DRUG USE FOR UNKNOWN INDICATION
     Dosage: EVERY THURSDAY
     Dates: start: 20090201

REACTIONS (11)
  - ACNE [None]
  - HYPERTENSION [None]
  - JOINT DESTRUCTION [None]
  - NERVOUSNESS [None]
  - OEDEMA [None]
  - PAIN [None]
  - PAIN IN EXTREMITY [None]
  - PRURITUS [None]
  - SKIN EXFOLIATION [None]
  - TENDONITIS [None]
  - WOUND [None]
